FAERS Safety Report 22813988 (Version 2)
Quarter: 2023Q4

REPORT INFORMATION
  Report Type: Other
  Country: FR (occurrence: FR)
  Receive Date: 20230811
  Receipt Date: 20231004
  Transmission Date: 20240110
  Serious: Yes (Death, Life-Threatening, Hospitalization, Disabling, Other)
  Sender: FDA-Public Use
  Company Number: FR-SA-2016SA198344

PATIENT

DRUGS (20)
  1. OMEPRAZOLE [Suspect]
     Active Substance: OMEPRAZOLE
     Indication: Dyspepsia
     Dosage: 1 DOSAGE FORM, QID
     Route: 048
     Dates: start: 20160728
  2. FLAGYL [Suspect]
     Active Substance: METRONIDAZOLE\METRONIDAZOLE HYDROCHLORIDE
     Indication: Gingivitis ulcerative
     Dosage: 1 DOSAGE FORM, TID
     Route: 048
     Dates: start: 20160721, end: 20160729
  3. SERTRALINE [Concomitant]
     Active Substance: SERTRALINE HYDROCHLORIDE
     Indication: Product used for unknown indication
     Dosage: 1 DOSAGE FORM, QD
     Route: 065
  4. PAROEX [Concomitant]
     Active Substance: CHLORHEXIDINE GLUCONATE
     Indication: Product used for unknown indication
     Dosage: UNK
     Route: 065
     Dates: start: 20160721
  5. DOLIPRANE [Concomitant]
     Active Substance: ACETAMINOPHEN
     Indication: Product used for unknown indication
     Dosage: 1 DOSAGE FORM PR 4 HRS
     Route: 065
  6. ZOLOFT [Concomitant]
     Active Substance: SERTRALINE HYDROCHLORIDE
     Indication: Product used for unknown indication
     Dosage: UNK
     Route: 065
  7. CYMBALTA [Concomitant]
     Active Substance: DULOXETINE HYDROCHLORIDE
     Indication: Product used for unknown indication
     Dosage: UNK
     Route: 065
  8. ACETAMINOPHEN [Concomitant]
     Active Substance: ACETAMINOPHEN
     Indication: Product used for unknown indication
     Dosage: UNK
     Route: 065
     Dates: start: 20160721
  9. ALPRAZOLAM [Concomitant]
     Active Substance: ALPRAZOLAM
     Indication: Product used for unknown indication
     Dosage: 50 MILLIGRAM
     Route: 065
  10. ALPRAZOLAM [Concomitant]
     Active Substance: ALPRAZOLAM
     Dosage: 1 TABLET MORNING AND NOON AND 2 TABLETS IN THE EVENING IF ANXIOUS
     Route: 065
  11. CLOTIAZEPAM [Concomitant]
     Active Substance: CLOTIAZEPAM
     Indication: Partner stress
     Dosage: 5 MILLIGRAM
     Route: 065
  12. LYRICA [Concomitant]
     Active Substance: PREGABALIN
     Indication: Product used for unknown indication
     Dosage: 50 MILLIGRAM
     Route: 065
  13. ETHINYL ESTRADIOL\LEVONORGESTREL [Concomitant]
     Active Substance: ETHINYL ESTRADIOL\LEVONORGESTREL
     Indication: Product used for unknown indication
     Dosage: UNK
     Route: 048
     Dates: start: 2014
  14. AMITRIPTYLINE HYDROCHLORIDE [Concomitant]
     Active Substance: AMITRIPTYLINE HYDROCHLORIDE
     Indication: Product used for unknown indication
     Dosage: 7 DOSAGE FORM
     Route: 065
  15. TEGRETOL [Concomitant]
     Active Substance: CARBAMAZEPINE
     Indication: Product used for unknown indication
     Dosage: 80 MILLIGRAM
     Route: 065
  16. RACECADOTRIL [Concomitant]
     Active Substance: RACECADOTRIL
     Indication: Product used for unknown indication
     Dosage: 80 MILLIGRAM
     Route: 065
  17. PREGABALINE SANDOZ [Concomitant]
     Indication: Product used for unknown indication
     Dosage: UNK
     Route: 065
  18. DULOXETINE [Concomitant]
     Active Substance: DULOXETINE
     Indication: Product used for unknown indication
     Dosage: 25 MILLIGRAM
     Route: 065
  19. GABAPENTIN [Concomitant]
     Active Substance: GABAPENTIN
     Indication: Product used for unknown indication
     Route: 065
  20. AMOXICILLIN [Concomitant]
     Active Substance: AMOXICILLIN
     Indication: Product used for unknown indication
     Dosage: UNK
     Route: 065

REACTIONS (42)
  - Completed suicide [Fatal]
  - Inappropriate schedule of product administration [Fatal]
  - Nightmare [Unknown]
  - Anorectal disorder [Recovered/Resolved with Sequelae]
  - Neuralgia [Recovered/Resolved with Sequelae]
  - Paraplegia [Recovered/Resolved with Sequelae]
  - Suicide attempt [Recovered/Resolved with Sequelae]
  - Tooth disorder [Unknown]
  - Urinary tract disorder [Recovered/Resolved with Sequelae]
  - Feeling abnormal [Unknown]
  - Disturbance in attention [Unknown]
  - Suicide attempt [Unknown]
  - Major depression [Unknown]
  - Decreased appetite [Unknown]
  - Obsessive thoughts [Unknown]
  - Meningorrhagia [Unknown]
  - Pneumothorax [Unknown]
  - Suicidal ideation [Unknown]
  - Internal fixation of fracture [Unknown]
  - Affective disorder [Unknown]
  - Dyspepsia [Unknown]
  - Decreased appetite [Recovered/Resolved]
  - Anxiety [Unknown]
  - Cervical vertebral fracture [Unknown]
  - Vertigo [Unknown]
  - Fatigue [Unknown]
  - Insomnia [Recovered/Resolved]
  - Feeling of despair [Unknown]
  - Confusional state [Unknown]
  - Toxicity to various agents [Fatal]
  - Hypotonia [Unknown]
  - Merycism [Unknown]
  - Dysphagia [Unknown]
  - Emphysema [Unknown]
  - Eschar [Unknown]
  - Hypertonic bladder [Unknown]
  - Decreased interest [Unknown]
  - Asthenia [Unknown]
  - Malaise [Unknown]
  - Abdominal pain [Unknown]
  - Somnolence [Unknown]
  - Nausea [Unknown]

NARRATIVE: CASE EVENT DATE: 20160805
